FAERS Safety Report 10570056 (Version 1)
Quarter: 2014Q4

REPORT INFORMATION
  Report Type: Spontaneous
  Country: DE (occurrence: DE)
  Receive Date: 20141107
  Receipt Date: 20141107
  Transmission Date: 20150529
  Serious: Yes (Other)
  Sender: FDA-Public Use
  Company Number: DE-AUROBINDO-AUR-APL-2014-11559

PATIENT
  Age: 32 Year
  Sex: Female
  Weight: 85 kg

DRUGS (2)
  1. PAROXETINE [Suspect]
     Active Substance: PAROXETINE\PAROXETINE HYDROCHLORIDE
     Indication: DEPRESSION
     Dosage: 40 MG, DAILY
     Route: 048
     Dates: start: 20130718, end: 20140413
  2. TAVOR [Concomitant]
     Active Substance: LORAZEPAM
     Indication: AGORAPHOBIA
     Dosage: 1.5 MG, DAILY
     Route: 048

REACTIONS (2)
  - Maternal exposure during pregnancy [Unknown]
  - Biliary colic [Unknown]
